FAERS Safety Report 13431324 (Version 1)
Quarter: 2017Q2

REPORT INFORMATION
  Report Type: Other
  Country: CA (occurrence: CA)
  Receive Date: 20170412
  Receipt Date: 20170412
  Transmission Date: 20170830
  Serious: Yes (Other)
  Sender: FDA-Public Use
  Company Number: CA-APOTEX-2017AP009654

PATIENT
  Age: 65 Year
  Sex: Male
  Weight: 88 kg

DRUGS (1)
  1. APO-DUTASTERIDE [Suspect]
     Active Substance: DUTASTERIDE
     Indication: BENIGN PROSTATIC HYPERPLASIA
     Dosage: 1 DF, QD
     Route: 048

REACTIONS (6)
  - Headache [Recovering/Resolving]
  - Ear disorder [Recovering/Resolving]
  - Hypoaesthesia oral [Recovering/Resolving]
  - Paranasal sinus discomfort [Recovering/Resolving]
  - Abdominal pain upper [Recovering/Resolving]
  - Eyelid oedema [Recovering/Resolving]
